FAERS Safety Report 6213884-1 (Version None)
Quarter: 2009Q2

REPORT INFORMATION
  Report Type: 
  Country: None (occurrence: None)
  Receive Date: 20090602
  Receipt Date: 20090602
  Transmission Date: 20091009
  Serious: No
  Sender: FDA-Public Use
  Company Number: None

PATIENT
  Sex: Female

DRUGS (2)
  1. TARCEVA [Suspect]
     Indication: LUNG NEOPLASM MALIGNANT
     Dosage: 100MG QD PO
     Route: 048
     Dates: start: 20090512, end: 20090519
  2. ZITHROMAX [Concomitant]

REACTIONS (5)
  - ANAL HAEMORRHAGE [None]
  - ANORECTAL DISCOMFORT [None]
  - COUGH [None]
  - DIARRHOEA [None]
  - DYSPNOEA [None]
